FAERS Safety Report 16569654 (Version 2)
Quarter: 2021Q4

REPORT INFORMATION
  Report Type: Spontaneous
  Country: ES (occurrence: ES)
  Receive Date: 20190715
  Receipt Date: 20211011
  Transmission Date: 20220304
  Serious: Yes (Life-Threatening, Other)
  Sender: FDA-Public Use
  Company Number: ES-AUROBINDO-AUR-APL-2019-039744

PATIENT
  Age: 41 Year
  Sex: Female

DRUGS (5)
  1. DIAZEPAM [Interacting]
     Active Substance: DIAZEPAM
     Indication: Neck pain
     Dosage: 5 MILLIGRAM
     Route: 048
     Dates: start: 20170423, end: 20170425
  2. IBUPROFEN [Interacting]
     Active Substance: IBUPROFEN
     Indication: Headache
     Dosage: UNK
     Route: 048
     Dates: start: 20170417, end: 20170425
  3. ACETAMINOPHEN [Interacting]
     Active Substance: ACETAMINOPHEN
     Indication: Headache
     Dosage: UNK
     Route: 048
     Dates: start: 20170417, end: 20170425
  4. NAPROXEN [Interacting]
     Active Substance: NAPROXEN
     Indication: Headache
     Dosage: UNK
     Route: 048
     Dates: start: 20170417, end: 20170425
  5. METAMIZOL [Interacting]
     Active Substance: METAMIZOLE SODIUM
     Indication: Headache
     Dosage: UNK
     Route: 048
     Dates: start: 20170417, end: 20170425

REACTIONS (4)
  - Acute kidney injury [Recovered/Resolved]
  - Acute hepatic failure [Recovered/Resolved]
  - Drug reaction with eosinophilia and systemic symptoms [Recovered/Resolved]
  - Toxic skin eruption [Recovered/Resolved]

NARRATIVE: CASE EVENT DATE: 20170425
